FAERS Safety Report 4769946-9 (Version None)
Quarter: 2005Q3

REPORT INFORMATION
  Report Type: 
  Country: None (occurrence: None)
  Receive Date: 20050914
  Receipt Date: 20050914
  Transmission Date: 20060218
  Serious: Yes (Hospitalization)
  Sender: FDA-Public Use
  Company Number: None

PATIENT
  Age: 68 Year
  Sex: Male
  Weight: 96.6162 kg

DRUGS (2)
  1. COLESTIPOL HCL [Suspect]
     Indication: HYPERLIPIDAEMIA
     Dosage: 1 G BID [BOTH DRUGS STARTED 10 DAYS BEFORE REACTION]
  2. METFORMIN HCL [Suspect]
     Indication: DIABETES MELLITUS
     Dosage: 500 MG BID [BOTH DRUGS STARTED 10 DAYS BEFORE REACTION]

REACTIONS (2)
  - DRUG ERUPTION [None]
  - RASH MACULO-PAPULAR [None]
